FAERS Safety Report 22667071 (Version 3)
Quarter: 2023Q4

REPORT INFORMATION
  Report Type: Report from Study
  Country: US (occurrence: US)
  Receive Date: 20230704
  Receipt Date: 20231031
  Transmission Date: 20240110
  Serious: Yes (Other)
  Sender: FDA-Public Use
  Company Number: US-ABBVIE-5312798

PATIENT
  Sex: Female

DRUGS (1)
  1. HUMIRA [Suspect]
     Active Substance: ADALIMUMAB
     Indication: Rheumatoid arthritis
     Dosage: FORM STRENGTH: 40 MG?CITRATE FREE
     Route: 058

REACTIONS (12)
  - Synovial cyst [Recovering/Resolving]
  - Sinusitis [Recovering/Resolving]
  - Overweight [Not Recovered/Not Resolved]
  - Skin papilloma [Recovering/Resolving]
  - Pain in extremity [Not Recovered/Not Resolved]
  - Drug ineffective [Not Recovered/Not Resolved]
  - Finger deformity [Not Recovered/Not Resolved]
  - Foot deformity [Unknown]
  - Cough [Recovered/Resolved]
  - Lung operation [Recovered/Resolved]
  - Joint swelling [Unknown]
  - Torus fracture [Unknown]
